FAERS Safety Report 8411286-0 (Version None)
Quarter: 2012Q2

REPORT INFORMATION
  Report Type: 
  Country: None (occurrence: None)
  Receive Date: 20120605
  Receipt Date: 20120531
  Transmission Date: 20120825
  Serious: Yes (Other)
  Sender: FDA-Public Use
  Company Number: GB-PFIZER INC-2012131013

PATIENT
  Age: 42 Year
  Sex: Female

DRUGS (1)
  1. VARENICLINE TARTRATE [Suspect]
     Dosage: UNK
     Route: 048

REACTIONS (3)
  - TEARFULNESS [None]
  - DEPRESSED MOOD [None]
  - CONVERSION DISORDER [None]
